FAERS Safety Report 20199370 (Version 1)
Quarter: 2021Q4

REPORT INFORMATION
  Report Type: Spontaneous
  Country: US (occurrence: US)
  Receive Date: 20211217
  Receipt Date: 20211217
  Transmission Date: 20220303
  Serious: Yes (Other)
  Sender: FDA-Public Use
  Company Number: US-PACIRA-2020000556

PATIENT
  Sex: Female

DRUGS (3)
  1. EXPAREL [Suspect]
     Active Substance: BUPIVACAINE
     Dosage: 20ML EXPAREL, 30ML 0.5% BUPIVACAINE, EXPANDED TO 60ML ?WITH SALINE
     Route: 065
  2. BUPIVACAINE [Suspect]
     Active Substance: BUPIVACAINE
     Dosage: 30ML 0.5% BUPIVACAINE, 20ML EXPAREL, EXPANDED TO 60ML ?WITH SALINE
  3. SALINE [Concomitant]
     Active Substance: SODIUM CHLORIDE
     Dosage: 10ML OF SALINE, 30ML 0.5% BUPIVACAINE, 20ML EXPAREL
     Route: 065

REACTIONS (2)
  - Seizure [Recovered/Resolved]
  - Off label use [Unknown]
